FAERS Safety Report 13877717 (Version 5)
Quarter: 2017Q3

REPORT INFORMATION
  Report Type: Report from Study
  Country: JP (occurrence: JP)
  Receive Date: 20170817
  Receipt Date: 20170914
  Transmission Date: 20171127
  Serious: Yes (Death, Other)
  Sender: FDA-Public Use
  Company Number: PHJP2016JP031173

PATIENT
  Age: 49 Year
  Sex: Female

DRUGS (15)
  1. ZYKADIA [Interacting]
     Active Substance: CERITINIB
     Dosage: 300 MG, QD
     Route: 048
     Dates: start: 20170228, end: 20170306
  2. WARFARIN [Suspect]
     Active Substance: WARFARIN
     Dosage: 2.75 MG, UNK
     Route: 048
  3. WARFARIN [Suspect]
     Active Substance: WARFARIN
     Indication: DEEP VEIN THROMBOSIS
     Dosage: 2.5 MG, QD
     Route: 048
     Dates: start: 20160806
  4. RINDERON-DP [Concomitant]
     Indication: NON-SMALL CELL LUNG CANCER STAGE IV
     Dosage: 0.5 MG, UNK
     Route: 048
  5. SELBEX [Concomitant]
     Active Substance: TEPRENONE
     Indication: NON-SMALL CELL LUNG CANCER STAGE IV
     Dosage: 3 DF, UNK
     Route: 048
  6. CARBOPLATIN. [Concomitant]
     Active Substance: CARBOPLATIN
     Indication: NON-SMALL CELL LUNG CANCER STAGE IV
     Dosage: 300 MG, UNK
     Route: 050
  7. ZYKADIA [Suspect]
     Active Substance: CERITINIB
     Indication: NON-SMALL CELL LUNG CANCER STAGE IV
     Dosage: 750 MG, QD
     Route: 048
     Dates: start: 20160727, end: 20160830
  8. ZYKADIA [Interacting]
     Active Substance: CERITINIB
     Dosage: 300 MG, QD
     Route: 048
     Dates: start: 20161213, end: 20170206
  9. WARFARIN [Suspect]
     Active Substance: WARFARIN
     Indication: NON-SMALL CELL LUNG CANCER STAGE IV
     Dosage: 3.5 MG, QD
     Route: 048
     Dates: end: 20170619
  10. ZYKADIA [Interacting]
     Active Substance: CERITINIB
     Dosage: 450 MG, QD
     Route: 048
     Dates: start: 20161025, end: 20161128
  11. BAKTAR [Concomitant]
     Active Substance: SULFAMETHOXAZOLE\TRIMETHOPRIM
     Indication: NON-SMALL CELL LUNG CANCER STAGE IV
     Dosage: 2 DF, QW2
     Route: 048
  12. ZYKADIA [Interacting]
     Active Substance: CERITINIB
     Dosage: 600 MG, QD
     Route: 048
     Dates: start: 20160916, end: 20161006
  13. ZYKADIA [Interacting]
     Active Substance: CERITINIB
     Dosage: 450 MG, QD
     Route: 048
     Dates: start: 20170207, end: 20170227
  14. ZYKADIA [Interacting]
     Active Substance: CERITINIB
     Dosage: 450 MG, QD
     Route: 048
     Dates: start: 20170324, end: 20170522
  15. ZYKADIA [Interacting]
     Active Substance: CERITINIB
     Dosage: 300 MG, QD
     Route: 048
     Dates: start: 20170523, end: 20170529

REACTIONS (12)
  - Alanine aminotransferase increased [Recovered/Resolved]
  - Diarrhoea [Recovered/Resolved]
  - Prothrombin time ratio increased [Recovered/Resolved]
  - Aspartate aminotransferase increased [Recovered/Resolved]
  - Non-small cell lung cancer stage IV [Fatal]
  - Malignant neoplasm progression [Fatal]
  - Pericardial effusion [Recovered/Resolved]
  - Alanine aminotransferase increased [Not Recovered/Not Resolved]
  - Vomiting [Recovered/Resolved]
  - Nausea [Not Recovered/Not Resolved]
  - Aspartate aminotransferase increased [Not Recovered/Not Resolved]
  - Drug interaction [Unknown]

NARRATIVE: CASE EVENT DATE: 20160729
